FAERS Safety Report 6989925-0 (Version None)
Quarter: 2010Q3

REPORT INFORMATION
  Report Type: 
  Country: None (occurrence: None)
  Receive Date: 20100916
  Receipt Date: 20100329
  Transmission Date: 20110219
  Serious: Yes (Hospitalization, Other)
  Sender: FDA-Public Use
  Company Number: US-PFIZER INC-2010011739

PATIENT
  Sex: Female
  Weight: 99.79 kg

DRUGS (3)
  1. LYRICA [Suspect]
     Dosage: UNK
  2. LYRICA [Suspect]
     Dates: start: 20100104, end: 20100106
  3. GABAPENTIN [Suspect]
     Dosage: 300 MG, 3X/DAY

REACTIONS (7)
  - ASTHMA [None]
  - HYPERSENSITIVITY [None]
  - HYPOAESTHESIA [None]
  - LOCAL SWELLING [None]
  - PARAESTHESIA [None]
  - SWELLING FACE [None]
  - TONGUE OEDEMA [None]
